FAERS Safety Report 20022274 (Version 1)
Quarter: 2021Q4

REPORT INFORMATION
  Report Type: Report from Study
  Country: US (occurrence: US)
  Receive Date: 20211102
  Receipt Date: 20211102
  Transmission Date: 20220303
  Serious: Yes (Death, Other)
  Sender: FDA-Public Use
  Company Number: US-ACADIA PHARMACEUTICALS INC.-ACA-2021-PIM-003828

PATIENT
  Age: 80 Year
  Sex: Male

DRUGS (18)
  1. NUPLAZID [Suspect]
     Active Substance: PIMAVANSERIN TARTRATE
     Indication: Parkinson^s disease
     Dosage: 34 MILLIGRAM, QD
     Route: 048
  2. MIDODRINE HYDROCHLORIDE [Concomitant]
     Active Substance: MIDODRINE HYDROCHLORIDE
     Dosage: 2.5 MG
  3. MEMANTINE [Concomitant]
     Active Substance: MEMANTINE
     Dosage: 10 MILLIGRAM
  4. LUTEIN COMPLEX [TAGETES ERECTA] [Concomitant]
     Dosage: 10 MILLIGRAM
  5. FISH OIL [Concomitant]
     Active Substance: FISH OIL
     Dosage: 100-150 MG
  6. ASPIRIN [Concomitant]
     Active Substance: ASPIRIN
     Dosage: 81 MILLIGRAM
  7. GALANTAMINE [Concomitant]
     Active Substance: GALANTAMINE
     Dosage: ER 24 MG CAP24H PEL
  8. SOTALOL [Concomitant]
     Active Substance: SOTALOL
     Dosage: 80 MILLIGRAM
  9. SELEGILINE HYDROCHLORIDE [Concomitant]
     Active Substance: SELEGILINE HYDROCHLORIDE
     Dosage: 5 MILLIGRAM
  10. ALOE VERA LEAF [Concomitant]
     Active Substance: ALOE VERA LEAF
     Dosage: 5000 MILLIGRAM
  11. BUDESONIDE [Concomitant]
     Active Substance: BUDESONIDE
     Dosage: 0.25 MG
  12. CALCIUM CARBONATE [Concomitant]
     Active Substance: CALCIUM CARBONATE
     Dosage: 500(125)
  13. CARBIDOPA\LEVODOPA [Concomitant]
     Active Substance: CARBIDOPA\LEVODOPA
     Dosage: 25 MG-10
  14. DAILY-VITE [Concomitant]
     Dosage: 400 MC
  15. FINASTERIDE [Concomitant]
     Active Substance: FINASTERIDE
     Dosage: 5 MILLIGRAM
  16. MIRALAX [Concomitant]
     Active Substance: POLYETHYLENE GLYCOL 3350
     Dosage: 17 G
  17. PANTOPRAZOLE SODIUM [Concomitant]
     Active Substance: PANTOPRAZOLE SODIUM
     Dosage: 20 MILLIGRAM
  18. HERBALS\TURMERIC [Concomitant]
     Active Substance: HERBALS\TURMERIC
     Dosage: 450MG-5

REACTIONS (1)
  - Death [Fatal]

NARRATIVE: CASE EVENT DATE: 20211021
